FAERS Safety Report 5371554-6 (Version None)
Quarter: 2007Q2

REPORT INFORMATION
  Report Type: 
  Country: None (occurrence: None)
  Receive Date: 20070625
  Receipt Date: 20070625
  Transmission Date: 20071010
  Serious: Yes (Other)
  Sender: FDA-Public Use
  Company Number: None

PATIENT
  Age: 58 Year
  Sex: Male
  Weight: 68 kg

DRUGS (4)
  1. PANITUMUMAB [Suspect]
     Indication: SQUAMOUS CELL CARCINOMA
     Dosage: WEEKLY, IV, 2.5MG/KG
     Route: 042
     Dates: start: 20070508, end: 20070612
  2. PANITUMUMAB [Suspect]
     Indication: TONGUE NEOPLASM MALIGNANT STAGE UNSPECIFIED
     Dosage: WEEKLY, IV, 2.5MG/KG
     Route: 042
     Dates: start: 20070508, end: 20070612
  3. CARBOPLATIN [Suspect]
     Dosage: AUC 1.5
  4. TAXOL [Suspect]
     Dosage: 30MG/M2 IV WKLY
     Route: 042

REACTIONS (1)
  - MUCOSAL INFLAMMATION [None]
